FAERS Safety Report 7202134-5 (Version None)
Quarter: 2010Q4

REPORT INFORMATION
  Report Type: 
  Country: None (occurrence: None)
  Receive Date: 20101229
  Receipt Date: 20101215
  Transmission Date: 20110411
  Serious: Yes (Other)
  Sender: FDA-Public Use
  Company Number: PHHY2010US86076

PATIENT
  Sex: Male

DRUGS (3)
  1. EXJADE [Suspect]
     Dosage: 1000 MG DAILY
     Route: 048
  2. VFEND [Concomitant]
  3. LEVAQUIN [Concomitant]

REACTIONS (3)
  - MALAISE [None]
  - MUSCULAR WEAKNESS [None]
  - MYALGIA [None]
